FAERS Safety Report 4601866-2 (Version None)
Quarter: 2005Q1

REPORT INFORMATION
  Report Type: 
  Country: None (occurrence: None)
  Receive Date: 20050131
  Receipt Date: 20041201
  Transmission Date: 20050727
  Serious: No
  Sender: FDA-Public Use
  Company Number: 200419232US

PATIENT
  Age: 35 Year
  Sex: Female

DRUGS (3)
  1. TELITHROMYCIN (KETEK) TABLETS [Suspect]
     Indication: LYME DISEASE
     Dosage: 400 MG QD PO
     Route: 048
     Dates: start: 20040828
  2. SUPPLEMENTS NOS [Concomitant]
  3. ATOVAQUONE (MEPRON) [Concomitant]

REACTIONS (2)
  - HEPATIC ENZYME INCREASED [None]
  - WHITE BLOOD CELL COUNT DECREASED [None]
